FAERS Safety Report 25669266 (Version 1)
Quarter: 2025Q3

REPORT INFORMATION
  Report Type: Spontaneous
  Country: JP (occurrence: JP)
  Receive Date: 20250812
  Receipt Date: 20250812
  Transmission Date: 20251021
  Serious: Yes (Hospitalization, Other)
  Sender: AMGEN
  Company Number: JP-AMGEN-JPNSP2025155120

PATIENT
  Sex: Female

DRUGS (1)
  1. EVENITY [Suspect]
     Active Substance: ROMOSOZUMAB-AQQG
     Indication: Bone density decreased
     Route: 058

REACTIONS (9)
  - Limb operation [Unknown]
  - Discomfort [Unknown]
  - Bone pain [Unknown]
  - Arthralgia [Unknown]
  - Gait disturbance [Unknown]
  - Malaise [Recovering/Resolving]
  - Dyspnoea [Unknown]
  - Fatigue [Unknown]
  - Limb discomfort [Unknown]
